FAERS Safety Report 8918116 (Version 1)
Quarter: 2012Q4

REPORT INFORMATION
  Report Type: 
  Country: US (occurrence: US)
  Receive Date: 20121120
  Receipt Date: 20121120
  Transmission Date: 20130627
  Serious: No
  Sender: FDA-Public Use
  Company Number: US-ASTRAZENECA-2012SE22029

PATIENT
  Age: 23 Year
  Sex: Female

DRUGS (5)
  1. NEXIUM [Suspect]
     Route: 048
  2. PRILOSEC [Suspect]
     Route: 048
  3. DEXILANT [Concomitant]
  4. PROTONIX [Concomitant]
  5. CARAFATE [Concomitant]

REACTIONS (2)
  - Drug ineffective [Unknown]
  - Off label use [Unknown]
